FAERS Safety Report 7790922-6 (Version None)
Quarter: 2011Q3

REPORT INFORMATION
  Report Type: 
  Country: None (occurrence: None)
  Receive Date: 20110930
  Receipt Date: 20110930
  Transmission Date: 20111222
  Serious: Yes (Other)
  Sender: FDA-Public Use
  Company Number: None

PATIENT
  Sex: Female
  Weight: 84.368 kg

DRUGS (1)
  1. DOCETAXEL [Suspect]
     Indication: BREAST CANCER STAGE I
     Dosage: 150MG
     Route: 041
     Dates: start: 20110915, end: 20110915

REACTIONS (1)
  - CHEMICAL INJURY [None]
